FAERS Safety Report 9527626 (Version 1)
Quarter: 2013Q1

REPORT INFORMATION
  Report Type: Spontaneous
  Country: US (occurrence: None)
  Receive Date: 20130314
  Receipt Date: 20130314
  Transmission Date: 20140127
  Serious: No
  Sender: FDA-Public Use
  Company Number: 1212USA003212

PATIENT
  Age: 62 Year
  Sex: Male

DRUGS (3)
  1. VICTRELIS (BOCEPREVIR) CAPSULE, 200 MG [Suspect]
     Indication: HEPATITIS C
     Route: 048
     Dates: start: 20121121
  2. PEG-INTRON [Suspect]
     Indication: HEPATITIS C
  3. RIBAPAK [Suspect]
     Route: 048

REACTIONS (4)
  - Dyspnoea [None]
  - Fatigue [None]
  - Diarrhoea [None]
  - Headache [None]
